FAERS Safety Report 7148982-1 (Version None)
Quarter: 2010Q4

REPORT INFORMATION
  Report Type: 
  Country: None (occurrence: None)
  Receive Date: 20101209
  Receipt Date: 20101203
  Transmission Date: 20110411
  Serious: Yes (Other)
  Sender: FDA-Public Use
  Company Number: GB-SANOFI-AVENTIS-2010SA073513

PATIENT

DRUGS (1)
  1. TRENTAL [Suspect]
     Route: 065

REACTIONS (1)
  - CEREBRAL HAEMORRHAGE [None]
